FAERS Safety Report 13332061 (Version 1)
Quarter: 2017Q1

REPORT INFORMATION
  Report Type: Spontaneous
  Country: US (occurrence: US)
  Receive Date: 20170314
  Receipt Date: 20170314
  Transmission Date: 20170428
  Serious: No
  Sender: FDA-Public Use
  Company Number: US-JNJFOC-20170211762

PATIENT
  Age: 80 Year
  Sex: Female
  Weight: 46.27 kg

DRUGS (1)
  1. TYLENOL EXTRA STRENGTH [Suspect]
     Active Substance: ACETAMINOPHEN
     Indication: PAIN
     Dosage: 2, 2, 1 IN A 24 HOUR PERIOD,WITH A GAP OF 5 HOURS (TOATL 5 CAPLETS).
     Route: 048
     Dates: start: 201609

REACTIONS (1)
  - Inappropriate schedule of drug administration [Unknown]

NARRATIVE: CASE EVENT DATE: 201609
